FAERS Safety Report 4809076-0 (Version None)
Quarter: 2005Q4

REPORT INFORMATION
  Report Type: 
  Country: None (occurrence: None)
  Receive Date: 20051024
  Receipt Date: 20051024
  Transmission Date: 20060501
  Serious: No
  Sender: FDA-Public Use
  Company Number: None

PATIENT
  Sex: Male

DRUGS (1)
  1. TRAMADOL HCL [Suspect]
     Indication: PAIN
     Dosage: 50MG ONE - TWO PO Q4-6 HOURS PP
     Route: 048
     Dates: start: 20050924, end: 20050925

REACTIONS (5)
  - DIZZINESS [None]
  - DYSPNOEA [None]
  - EYE DISORDER [None]
  - NAUSEA [None]
  - PRURITUS [None]
